FAERS Safety Report 13269318 (Version 1)
Quarter: 2017Q1

REPORT INFORMATION
  Report Type: Spontaneous
  Country: US (occurrence: US)
  Receive Date: 20170224
  Receipt Date: 20170224
  Transmission Date: 20170428
  Serious: No
  Sender: FDA-Public Use
  Company Number: US-ELI_LILLY_AND_COMPANY-US201702009557

PATIENT
  Sex: Male
  Weight: 99.77 kg

DRUGS (6)
  1. PRAVASTATIN. [Concomitant]
     Active Substance: PRAVASTATIN
     Indication: BLOOD CHOLESTEROL INCREASED
     Route: 065
  2. VIIBRYD [Concomitant]
     Active Substance: VILAZODONE HYDROCHLORIDE
     Indication: DEPRESSION
     Route: 065
  3. VITAMIN D                          /00107901/ [Concomitant]
     Active Substance: ERGOCALCIFEROL
     Indication: VITAMIN D DECREASED
     Dosage: 5000 U, QD
     Route: 065
  4. AXIRON [Suspect]
     Active Substance: TESTOSTERONE
     Indication: BLOOD TESTOSTERONE DECREASED
     Dosage: 30 MG, QD
     Route: 061
     Dates: start: 201604
  5. AXIRON [Suspect]
     Active Substance: TESTOSTERONE
     Dosage: 60 MG, UNKNOWN
     Route: 061
  6. CLOZAPINE. [Concomitant]
     Active Substance: CLOZAPINE
     Indication: ANXIETY
     Route: 065

REACTIONS (10)
  - Lethargy [Unknown]
  - Hypotonia [Unknown]
  - Decreased appetite [Recovering/Resolving]
  - Drug effect decreased [Unknown]
  - Sluggishness [Unknown]
  - Feeling abnormal [Unknown]
  - Weight decreased [Unknown]
  - Asthenia [Unknown]
  - Hypopituitarism [Recovered/Resolved]
  - Incorrect dose administered [Unknown]

NARRATIVE: CASE EVENT DATE: 20010202
